FAERS Safety Report 5611560-7 (Version None)
Quarter: 2008Q1

REPORT INFORMATION
  Report Type: 
  Country: None (occurrence: None)
  Receive Date: 20080201
  Receipt Date: 20080128
  Transmission Date: 20080703
  Serious: Yes (Hospitalization)
  Sender: FDA-Public Use
  Company Number: SE-BOEHRINGER INGELHEIM GMBH, GERMANY-2008-SW-00025SW

PATIENT
  Age: 80 Year
  Sex: Male

DRUGS (1)
  1. MOBIC TAB. [Suspect]
     Indication: BACK PAIN
     Dates: start: 20040101, end: 20080101

REACTIONS (2)
  - HYPERTENSION [None]
  - TRANSIENT ISCHAEMIC ATTACK [None]
